FAERS Safety Report 7231318-5 (Version None)
Quarter: 2011Q1

REPORT INFORMATION
  Report Type: 
  Country: None (occurrence: None)
  Receive Date: 20110118
  Receipt Date: 20110106
  Transmission Date: 20110831
  Serious: Yes (Hospitalization, Other)
  Sender: FDA-Public Use
  Company Number: PHHY2010AT85538

PATIENT
  Age: 42 Year
  Sex: Female

DRUGS (3)
  1. AMOXICILLIN [Suspect]
     Indication: HELICOBACTER GASTRITIS
     Dosage: 1000 MG, BID
  2. PANTOPRAZOLE [Suspect]
     Indication: HELICOBACTER GASTRITIS
     Dosage: 40 MG, QD
  3. CLARITHROMYCIN [Suspect]
     Indication: HELICOBACTER GASTRITIS
     Dosage: 500 MG, BID

REACTIONS (25)
  - HYPERCHOLESTEROLAEMIA [None]
  - NIGHTMARE [None]
  - PERSONALITY DISORDER [None]
  - RESTLESSNESS [None]
  - PARANOIA [None]
  - CONVULSION [None]
  - CONFUSIONAL STATE [None]
  - CRYING [None]
  - THOUGHT INSERTION [None]
  - THINKING ABNORMAL [None]
  - DELUSION [None]
  - HYPERVIGILANCE [None]
  - MEMORY IMPAIRMENT [None]
  - EUPHORIC MOOD [None]
  - NERVOUSNESS [None]
  - ANXIETY [None]
  - DISTURBANCE IN ATTENTION [None]
  - AMNESTIC DISORDER [None]
  - DYSPHORIA [None]
  - DEREALISATION [None]
  - ACUTE PSYCHOSIS [None]
  - INSOMNIA [None]
  - AGITATION [None]
  - FEAR [None]
  - BRADYPHRENIA [None]
